FAERS Safety Report 4831793-7 (Version None)
Quarter: 2005Q4

REPORT INFORMATION
  Report Type: 
  Country: None (occurrence: None)
  Receive Date: 20051118
  Receipt Date: 20051108
  Transmission Date: 20060501
  Serious: Yes (Other)
  Sender: FDA-Public Use
  Company Number: PHBS2005ES16740

PATIENT
  Age: 66 Year
  Sex: Female

DRUGS (3)
  1. ZOMETA [Suspect]
     Indication: METASTASES TO BONE
     Dosage: UNK, UNK
     Dates: start: 20010601, end: 20041101
  2. VINORELBINE [Concomitant]
     Route: 042
  3. TRASTUZUMAB [Concomitant]
     Route: 065

REACTIONS (5)
  - BONE LESION [None]
  - HYPERBARIC OXYGEN THERAPY [None]
  - OSTEONECROSIS [None]
  - SURGERY [None]
  - TOOTH INFECTION [None]
